FAERS Safety Report 26012563 (Version 1)
Quarter: 2025Q4

REPORT INFORMATION
  Report Type: Spontaneous
  Country: TR (occurrence: TR)
  Receive Date: 20251107
  Receipt Date: 20251107
  Transmission Date: 20260117
  Serious: Yes (Hospitalization, Other)
  Sender: SANOFI AVENTIS
  Company Number: TR-BIOVITRUM-2025-TR-015222

PATIENT
  Age: 12 Year
  Sex: Male

DRUGS (2)
  1. ELOCTA [Suspect]
     Active Substance: EFMOROCTOCOG ALFA
     Indication: Factor VIII deficiency
     Dosage: 2000 IU; X2/WEEKPATIENT HAS USED THE DRUG ONLY 1
     Route: 042
  2. ELOCTA [Suspect]
     Active Substance: EFMOROCTOCOG ALFA
     Indication: Factor VIII deficiency
     Dosage: 2000 IU; X2/WEEKPATIENT HAS USED THE DRUG ONLY 1
     Route: 042

REACTIONS (2)
  - Factor VIII inhibition [Unknown]
  - Haemorrhage [Unknown]
